FAERS Safety Report 8327889-8 (Version None)
Quarter: 2012Q2

REPORT INFORMATION
  Report Type: 
  Country: None (occurrence: None)
  Receive Date: 20120502
  Receipt Date: 20120427
  Transmission Date: 20120825
  Serious: Yes (Hospitalization)
  Sender: FDA-Public Use
  Company Number: KR-SANOFI-AVENTIS-2012SA008057

PATIENT
  Age: 86 Year
  Sex: Female
  Weight: 60 kg

DRUGS (2)
  1. LANTUS [Suspect]
     Indication: DIABETES MELLITUS
     Dosage: DOSE:10 UNIT(S)
     Route: 058
  2. LANTUS [Suspect]
     Dosage: DOSE:6 UNIT(S)
     Route: 058
     Dates: start: 20120206

REACTIONS (3)
  - VOMITING [None]
  - VERTIGO POSITIONAL [None]
  - DIZZINESS [None]
